FAERS Safety Report 5843473-X (Version None)
Quarter: 2008Q3

REPORT INFORMATION
  Report Type: 
  Country: None (occurrence: None)
  Receive Date: 20080811
  Receipt Date: 20080731
  Transmission Date: 20090109
  Serious: Yes (Hospitalization)
  Sender: FDA-Public Use
  Company Number: GB-000107

PATIENT
  Age: 70 Year
  Sex: Female

DRUGS (3)
  1. BARIUM (BARIUM SULPHATE) LOT# UNKNOWN UNKNOWN UNKNOWN [Suspect]
     Indication: ABDOMINAL PAIN
     Dosage: RECTAL
     Route: 054
  2. BARIUM (BARIUM SULPHATE) LOT# UNKNOWN UNKNOWN UNKNOWN [Suspect]
     Indication: BARIUM ENEMA
     Dosage: RECTAL
     Route: 054
  3. ANTISPASMODICS [Concomitant]

REACTIONS (3)
  - CARDIAC FAILURE [None]
  - COLONIC OBSTRUCTION [None]
  - INTESTINAL ISCHAEMIA [None]
